FAERS Safety Report 5076426-2 (Version None)
Quarter: 2006Q3

REPORT INFORMATION
  Report Type: 
  Country: None (occurrence: None)
  Receive Date: 20060725
  Receipt Date: 20060424
  Transmission Date: 20061208
  Serious: No
  Sender: FDA-Public Use
  Company Number: 200612657BWH

PATIENT
  Age: 56 Year
  Sex: Female

DRUGS (1)
  1. NEXAVAR [Suspect]
     Indication: SARCOMA
     Dosage: 400 MG, BID, ORAL
     Route: 048
     Dates: start: 20060403

REACTIONS (8)
  - ABDOMINAL PAIN [None]
  - CHEILITIS [None]
  - GLOSSODYNIA [None]
  - LIP DRY [None]
  - LIP PAIN [None]
  - PYREXIA [None]
  - SKIN EXFOLIATION [None]
  - STOMATITIS [None]
